FAERS Safety Report 16233263 (Version 1)
Quarter: 2019Q2

REPORT INFORMATION
  Report Type: Report from Study
  Country: None (occurrence: NL)
  Receive Date: 20190424
  Receipt Date: 20190424
  Transmission Date: 20190711
  Serious: Yes (Other)
  Sender: FDA-Public Use
  Company Number: NL-ABBVIE-19S-114-2750681-00

PATIENT
  Sex: Male

DRUGS (2)
  1. DUODOPA [Suspect]
     Active Substance: CARBIDOPA\LEVODOPA
     Indication: PARKINSON^S DISEASE
     Dosage: MD: 6.0, CD: 3.3, ED: 1.5??16 HOUR ADMINISTRATION
     Route: 050
     Dates: start: 20121205
  2. BOTOX [Concomitant]
     Active Substance: ONABOTULINUMTOXINA
     Indication: PRODUCT USED FOR UNKNOWN INDICATION

REACTIONS (8)
  - Cataract [Not Recovered/Not Resolved]
  - Middle insomnia [Not Recovered/Not Resolved]
  - Unevaluable event [Not Recovered/Not Resolved]
  - Bradykinesia [Not Recovered/Not Resolved]
  - Fatigue [Not Recovered/Not Resolved]
  - Dyskinesia [Not Recovered/Not Resolved]
  - Abnormal dreams [Not Recovered/Not Resolved]
  - Muscle rigidity [Not Recovered/Not Resolved]
